FAERS Safety Report 8517296 (Version 3)
Quarter: 2012Q4

REPORT INFORMATION
  Report Type: 
  Country: ES (occurrence: ES)
  Receive Date: 20120417
  Receipt Date: 20120917
  Transmission Date: 20130627
  Serious: Yes (Hospitalization, Other)
  Sender: FDA-Public Use
  Company Number: ES-ELI_LILLY_AND_COMPANY-ES201204003578

PATIENT
  Age: 69 Year
  Sex: Female
  Weight: 73 kg

DRUGS (15)
  1. FORSTEO [Suspect]
     Indication: OSTEOPOROSIS
     Dosage: 20 ug, qd
     Route: 058
     Dates: start: 20110627, end: 20120321
  2. A.A.S. [Concomitant]
     Indication: MYOCARDIAL ISCHAEMIA
     Dosage: 1 DF, qd
     Route: 048
  3. ALMAX [Concomitant]
     Indication: GASTROINTESTINAL DISORDER THERAPY
     Dosage: UNK, prn
     Route: 048
  4. ATORVASTATINA                      /01326102/ [Concomitant]
     Dosage: 40 mg, qd
     Route: 048
  5. BISOPROLOL NORMON [Concomitant]
     Dosage: UNK, qd
     Route: 048
  6. CAFINITRINA [Concomitant]
     Indication: CARDIAC DISORDER
     Dosage: UNK, prn
     Route: 048
  7. CLOPIDOGREL [Concomitant]
     Dosage: 75 mg, qd
     Route: 048
  8. CORDIPLAST [Concomitant]
     Dosage: 10 mg, qd
     Route: 062
  9. GANFORT [Concomitant]
     Dosage: 300 mg, qd
     Route: 047
  10. IDEOS [Concomitant]
     Indication: OSTEOPOROSIS
     Dosage: UNK, qd
     Route: 048
  11. LOSARTAN NORMON [Concomitant]
     Dosage: 25 mg, qd
     Route: 048
  12. OMEPRAZOL [Concomitant]
     Dosage: 20 mg, qd
     Route: 048
  13. PARACETAMOL [Concomitant]
     Dosage: UNK, qd
     Route: 048
  14. PLANTAGO AFRA [Concomitant]
     Dosage: UNK, qd
     Route: 048
  15. CARDIL                             /00489702/ [Concomitant]
     Dosage: 40 mg, qd
     Route: 048

REACTIONS (5)
  - Cardiac disorder [Unknown]
  - Dizziness [Unknown]
  - Loss of consciousness [Unknown]
  - Nephrolithiasis [Not Recovered/Not Resolved]
  - Cholelithiasis [Not Recovered/Not Resolved]
